FAERS Safety Report 10532814 (Version 1)
Quarter: 2014Q4

REPORT INFORMATION
  Report Type: Spontaneous
  Country: US (occurrence: US)
  Receive Date: 20141022
  Receipt Date: 20141022
  Transmission Date: 20150529
  Serious: Yes (Hospitalization, Disabling)
  Sender: FDA-Public Use
  Company Number: US-ROCHE-1476795

PATIENT
  Sex: Male

DRUGS (1)
  1. RITUXAN [Suspect]
     Active Substance: RITUXIMAB
     Indication: NON-HODGKIN^S LYMPHOMA
     Route: 065
     Dates: start: 20140602, end: 20140920

REACTIONS (3)
  - Heart rate increased [Not Recovered/Not Resolved]
  - Abasia [Not Recovered/Not Resolved]
  - Hypotension [Not Recovered/Not Resolved]
